FAERS Safety Report 13118833 (Version 4)
Quarter: 2018Q4

REPORT INFORMATION
  Report Type: Spontaneous
  Country: US (occurrence: US)
  Receive Date: 20170116
  Receipt Date: 20181128
  Transmission Date: 20190204
  Serious: Yes (Other)
  Sender: FDA-Public Use
  Company Number: US-ASTRAZENECA-2017SE03005

PATIENT
  Age: 61 Year
  Sex: Female
  Weight: 58.5 kg

DRUGS (54)
  1. NEXIUM [Suspect]
     Active Substance: ESOMEPRAZOLE MAGNESIUM
     Indication: GASTROOESOPHAGEAL REFLUX DISEASE
     Route: 048
     Dates: start: 2003
  2. PRILOSEC [Suspect]
     Active Substance: OMEPRAZOLE MAGNESIUM
     Indication: PEPTIC ULCER
     Dosage: GENERIC
     Route: 065
     Dates: start: 2004, end: 2016
  3. CYCLOBENZAPRINE HYDROCHLORIDE. [Concomitant]
     Active Substance: CYCLOBENZAPRINE HYDROCHLORIDE
     Route: 048
     Dates: start: 20060121
  4. BUSPIRONE HYDROCHLORIDE. [Concomitant]
     Active Substance: BUSPIRONE HYDROCHLORIDE
     Indication: ANXIETY
     Route: 048
     Dates: start: 20080828
  5. CELECOXIB. [Concomitant]
     Active Substance: CELECOXIB
     Dates: start: 20080729
  6. ZYRTEC [Concomitant]
     Active Substance: CETIRIZINE HYDROCHLORIDE
     Indication: SEASONAL ALLERGY
     Dosage: VARIOUS TIMES
  7. LEVOTHYROXINE. [Concomitant]
     Active Substance: LEVOTHYROXINE
     Indication: THYROID DISORDER
     Dates: start: 1992
  8. FLUTICASONE. [Concomitant]
     Active Substance: FLUTICASONE
     Indication: HYPERSENSITIVITY
     Dates: start: 201706
  9. PRILOSEC [Suspect]
     Active Substance: OMEPRAZOLE MAGNESIUM
     Indication: PROPHYLAXIS AGAINST GASTROINTESTINAL ULCER
     Route: 048
     Dates: start: 2001
  10. PRILOSEC [Suspect]
     Active Substance: OMEPRAZOLE MAGNESIUM
     Indication: GASTROOESOPHAGEAL REFLUX DISEASE
     Route: 048
     Dates: start: 20080828
  11. PRILOSEC OTC [Suspect]
     Active Substance: OMEPRAZOLE MAGNESIUM
     Indication: PROPHYLAXIS AGAINST GASTROINTESTINAL ULCER
     Route: 048
     Dates: start: 2006, end: 2012
  12. PROTONIX [Suspect]
     Active Substance: PANTOPRAZOLE SODIUM
     Indication: GASTROOESOPHAGEAL REFLUX DISEASE
     Dosage: GENERIC
     Route: 065
  13. ROPINIROLE HYDROCHLORIDE. [Concomitant]
     Active Substance: ROPINIROLE HYDROCHLORIDE
     Indication: RESTLESS LEGS SYNDROME
     Route: 048
     Dates: start: 20120305
  14. MYLANTA [Concomitant]
     Active Substance: ALUMINUM HYDROXIDE\DIMETHICONE\MAGNESIUM HYDROXIDE
     Indication: MUSCLE SPASMS
     Dates: start: 200109, end: 200112
  15. PRILOSEC [Suspect]
     Active Substance: OMEPRAZOLE MAGNESIUM
     Indication: GASTROOESOPHAGEAL REFLUX DISEASE
     Dosage: GENERIC
     Route: 065
  16. PRILOSEC [Suspect]
     Active Substance: OMEPRAZOLE MAGNESIUM
     Indication: PEPTIC ULCER
     Dosage: GENERIC
     Route: 065
  17. PRILOSEC OTC [Suspect]
     Active Substance: OMEPRAZOLE MAGNESIUM
     Indication: PEPTIC ULCER
     Route: 048
     Dates: start: 2006, end: 2012
  18. CLONAZEPAM. [Concomitant]
     Active Substance: CLONAZEPAM
     Route: 048
     Dates: start: 20080828
  19. BUSPIRONE HYDROCHLORIDE. [Concomitant]
     Active Substance: BUSPIRONE HYDROCHLORIDE
     Indication: ANXIETY
     Route: 065
     Dates: start: 2002
  20. EPINEPHRINE. [Concomitant]
     Active Substance: EPINEPHRINE
     Indication: HYPERSENSITIVITY
     Dates: start: 2002
  21. NEXIUM [Suspect]
     Active Substance: ESOMEPRAZOLE MAGNESIUM
     Indication: GASTROOESOPHAGEAL REFLUX DISEASE
     Route: 048
     Dates: start: 2001
  22. PRILOSEC [Suspect]
     Active Substance: OMEPRAZOLE MAGNESIUM
     Indication: PEPTIC ULCER
     Route: 048
     Dates: start: 2001
  23. PRILOSEC [Suspect]
     Active Substance: OMEPRAZOLE MAGNESIUM
     Indication: PEPTIC ULCER
     Route: 048
     Dates: start: 20050531
  24. ATENOLOL. [Concomitant]
     Active Substance: ATENOLOL
     Indication: BLOOD PRESSURE MEASUREMENT
     Route: 048
     Dates: start: 20061006
  25. CLONIDINE HYDROCHLORIDE. [Concomitant]
     Active Substance: CLONIDINE HYDROCHLORIDE
     Indication: BLOOD PRESSURE MEASUREMENT
     Route: 048
     Dates: start: 20060121
  26. CLONAZEPAM. [Concomitant]
     Active Substance: CLONAZEPAM
     Dosage: 1.0MG UNKNOWN
     Route: 065
     Dates: start: 20070416
  27. VITAMIN D3 [Concomitant]
     Active Substance: CHOLECALCIFEROL
     Indication: VITAMIN SUPPLEMENTATION
     Dates: start: 2012
  28. FLEXERIL [Concomitant]
     Active Substance: CYCLOBENZAPRINE HYDROCHLORIDE
     Indication: MUSCLE SPASMS
     Dates: start: 2016
  29. PRILOSEC [Suspect]
     Active Substance: OMEPRAZOLE MAGNESIUM
     Indication: GASTROOESOPHAGEAL REFLUX DISEASE
     Route: 048
     Dates: start: 2001
  30. PRILOSEC [Suspect]
     Active Substance: OMEPRAZOLE MAGNESIUM
     Indication: PROPHYLAXIS AGAINST GASTROINTESTINAL ULCER
     Route: 048
     Dates: start: 20050531
  31. PRILOSEC OTC [Suspect]
     Active Substance: OMEPRAZOLE MAGNESIUM
     Indication: GASTROOESOPHAGEAL REFLUX DISEASE
     Dosage: 20.0MG UNKNOWN
     Route: 065
     Dates: start: 20060325
  32. ZANTAC [Concomitant]
     Active Substance: RANITIDINE HYDROCHLORIDE
     Dosage: 150.0MG UNKNOWN
     Dates: start: 2003
  33. PRILOSEC [Suspect]
     Active Substance: OMEPRAZOLE MAGNESIUM
     Indication: GASTROOESOPHAGEAL REFLUX DISEASE
     Dosage: GENERIC
     Route: 065
     Dates: start: 2004, end: 2016
  34. PROTONIX [Suspect]
     Active Substance: PANTOPRAZOLE SODIUM
     Indication: GASTROOESOPHAGEAL REFLUX DISEASE
     Route: 065
     Dates: start: 2003
  35. FAMOTIDINE. [Concomitant]
     Active Substance: FAMOTIDINE
     Indication: GASTROOESOPHAGEAL REFLUX DISEASE
     Dates: start: 201603, end: 201607
  36. FISH OIL [Concomitant]
     Active Substance: FISH OIL
     Indication: VITAMIN SUPPLEMENTATION
     Dates: start: 2012
  37. PRILOSEC [Suspect]
     Active Substance: OMEPRAZOLE MAGNESIUM
     Indication: GASTROOESOPHAGEAL REFLUX DISEASE
     Route: 048
     Dates: start: 2006, end: 2012
  38. PRILOSEC [Suspect]
     Active Substance: OMEPRAZOLE MAGNESIUM
     Indication: PEPTIC ULCER
     Route: 048
     Dates: start: 2006, end: 2012
  39. PRILOSEC [Suspect]
     Active Substance: OMEPRAZOLE MAGNESIUM
     Indication: PROPHYLAXIS AGAINST GASTROINTESTINAL ULCER
     Dosage: GENERIC
     Route: 065
  40. PRILOSEC OTC [Suspect]
     Active Substance: OMEPRAZOLE MAGNESIUM
     Indication: PROPHYLAXIS AGAINST GASTROINTESTINAL ULCER
     Dosage: 20.0MG UNKNOWN
     Route: 065
     Dates: start: 20060325
  41. PROTONIX [Suspect]
     Active Substance: PANTOPRAZOLE SODIUM
     Indication: GASTROOESOPHAGEAL REFLUX DISEASE
     Route: 065
     Dates: start: 20031017
  42. QUETIAPINE FUMARATE. [Concomitant]
     Active Substance: QUETIAPINE FUMARATE
     Route: 048
     Dates: start: 20080812
  43. PRILOSEC [Suspect]
     Active Substance: OMEPRAZOLE MAGNESIUM
     Indication: PROPHYLAXIS AGAINST GASTROINTESTINAL ULCER
     Route: 048
     Dates: start: 2006, end: 2012
  44. PRILOSEC [Suspect]
     Active Substance: OMEPRAZOLE MAGNESIUM
     Indication: PEPTIC ULCER
     Route: 048
     Dates: start: 20080828
  45. PRILOSEC [Suspect]
     Active Substance: OMEPRAZOLE MAGNESIUM
     Indication: PROPHYLAXIS AGAINST GASTROINTESTINAL ULCER
     Route: 048
     Dates: start: 20080828
  46. PRILOSEC [Suspect]
     Active Substance: OMEPRAZOLE MAGNESIUM
     Indication: GASTROOESOPHAGEAL REFLUX DISEASE
     Route: 048
     Dates: start: 20050531
  47. PRILOSEC [Suspect]
     Active Substance: OMEPRAZOLE MAGNESIUM
     Indication: PROPHYLAXIS AGAINST GASTROINTESTINAL ULCER
     Dosage: GENERIC
     Route: 065
     Dates: start: 2004, end: 2016
  48. PRILOSEC OTC [Suspect]
     Active Substance: OMEPRAZOLE MAGNESIUM
     Indication: GASTROOESOPHAGEAL REFLUX DISEASE
     Route: 048
     Dates: start: 2006, end: 2012
  49. PRILOSEC OTC [Suspect]
     Active Substance: OMEPRAZOLE MAGNESIUM
     Indication: PEPTIC ULCER
     Dosage: 20.0MG UNKNOWN
     Route: 065
     Dates: start: 20060325
  50. ATENOLOL. [Concomitant]
     Active Substance: ATENOLOL
     Indication: BLOOD PRESSURE MEASUREMENT
     Route: 065
     Dates: start: 2002
  51. LEVOTHYROXINE SODIUM. [Concomitant]
     Active Substance: LEVOTHYROXINE SODIUM
     Route: 048
     Dates: start: 20060121
  52. TRAMADOL HYDROCHLORIDE. [Concomitant]
     Active Substance: TRAMADOL HYDROCHLORIDE
     Dosage: 50.0MG UNKNOWN
     Route: 065
     Dates: start: 20150625
  53. IBUPROFEN. [Concomitant]
     Active Substance: IBUPROFEN
     Dosage: 600.0MG UNKNOWN
     Route: 065
     Dates: start: 20090121
  54. ADVIL [Concomitant]
     Active Substance: IBUPROFEN
     Indication: PAIN
     Dosage: VARIOUS TIMES

REACTIONS (3)
  - Acute kidney injury [Unknown]
  - Renal failure [Not Recovered/Not Resolved]
  - Chronic kidney disease [Unknown]

NARRATIVE: CASE EVENT DATE: 2012
